FAERS Safety Report 6309233-0 (Version None)
Quarter: 2009Q3

REPORT INFORMATION
  Report Type: 
  Country: None (occurrence: None)
  Receive Date: 20090814
  Receipt Date: 20090806
  Transmission Date: 20100115
  Serious: Yes (Hospitalization, Other)
  Sender: FDA-Public Use
  Company Number: US-PFIZER INC-2005039351

PATIENT
  Sex: Female
  Weight: 54 kg

DRUGS (9)
  1. PROVERA [Suspect]
     Indication: HORMONE REPLACEMENT THERAPY
     Dosage: UNK
     Route: 048
     Dates: start: 19880101, end: 19970101
  2. MEDROXYPROGESTERONE AND MEDROXYPROGESTERONE ACETATE [Suspect]
     Indication: HORMONE REPLACEMENT THERAPY
     Dosage: 2.5 MG, UNK
     Dates: start: 19880101, end: 19970101
  3. PREMARIN [Suspect]
     Indication: HORMONE REPLACEMENT THERAPY
     Dosage: UNK
     Route: 065
     Dates: start: 19940101, end: 19970101
  4. PREMPRO [Suspect]
     Indication: HORMONE REPLACEMENT THERAPY
     Dosage: 0.625/2.5MG
     Route: 065
     Dates: start: 19970101, end: 20030101
  5. ESTROGENS CONJUGATED [Suspect]
     Indication: HORMONE REPLACEMENT THERAPY
     Dosage: 0.625MG
     Dates: start: 19880101, end: 19970101
  6. ESTRACE [Suspect]
     Indication: HORMONE REPLACEMENT THERAPY
     Dosage: UNK
     Dates: start: 19880101, end: 19940101
  7. ASPIRIN [Concomitant]
     Dosage: 81 MG, UNK
     Dates: start: 19990101
  8. MAXZIDE [Concomitant]
     Indication: BLOOD PRESSURE
     Dosage: 12.5 MG, 1X/DAY
     Dates: start: 19900101
  9. SYNTHROID [Concomitant]
     Indication: THYROID DISORDER
     Dosage: UNK MG, 1X/DAY
     Dates: start: 19700101

REACTIONS (1)
  - BREAST CANCER FEMALE [None]
